FAERS Safety Report 7712332-X (Version None)
Quarter: 2011Q3

REPORT INFORMATION
  Report Type: 
  Country: None (occurrence: None)
  Receive Date: 20110826
  Receipt Date: 20110823
  Transmission Date: 20111222
  Serious: No
  Sender: FDA-Public Use
  Company Number: US-TEVA-297956USA

PATIENT
  Sex: Female
  Weight: 98.972 kg

DRUGS (2)
  1. IRON SUPPLEMENT [Concomitant]
     Indication: ANAEMIA
  2. PLAN B ONE-STEP [Suspect]
     Indication: POST COITAL CONTRACEPTION
     Dosage: 1.5 MILLIGRAM;
     Route: 048
     Dates: start: 20110822, end: 20110822

REACTIONS (1)
  - MENSTRUATION IRREGULAR [None]
